FAERS Safety Report 6333887-6 (Version None)
Quarter: 2009Q3

REPORT INFORMATION
  Report Type: 
  Country: None (occurrence: None)
  Receive Date: 20090829
  Receipt Date: 20090708
  Transmission Date: 20100115
  Serious: No
  Sender: FDA-Public Use
  Company Number: US-ABBOTT-09P-163-0580744-00

PATIENT
  Sex: Female
  Weight: 63.56 kg

DRUGS (2)
  1. SIMCOR [Suspect]
     Indication: BLOOD CHOLESTEROL INCREASED
     Dosage: 500/20 AT BEDTIME
     Route: 048
     Dates: start: 20090601, end: 20090702
  2. EVISTA [Concomitant]
     Indication: OSTEOPOROSIS

REACTIONS (1)
  - FLUSHING [None]
